FAERS Safety Report 7884841-4 (Version None)
Quarter: 2011Q4

REPORT INFORMATION
  Report Type: 
  Country: None (occurrence: None)
  Receive Date: 20111102
  Receipt Date: 20111025
  Transmission Date: 20120403
  Serious: Yes (Hospitalization)
  Sender: FDA-Public Use
  Company Number: PHHY2011NL89507

PATIENT
  Sex: Male

DRUGS (5)
  1. ANTIHYPERTENSIVE DRUGS [Concomitant]
  2. DOSTINEX [Concomitant]
  3. SODIUM POLYSTYRENE SULFONATE [Concomitant]
  4. PANTOPRAZOLE SODIUM [Concomitant]
  5. SANDOSTATIN LAR [Suspect]
     Indication: ACROMEGALY
     Dosage: 30 MG, UNK
     Dates: start: 20100519

REACTIONS (4)
  - VOMITING [None]
  - JAUNDICE [None]
  - PANCREATIC DISORDER [None]
  - LOSS OF CONSCIOUSNESS [None]
